FAERS Safety Report 15136680 (Version 1)
Quarter: 2018Q3

REPORT INFORMATION
  Report Type: Spontaneous
  Country: US (occurrence: US)
  Receive Date: 20180618
  Receipt Date: 20180618
  Transmission Date: 20181010
  Serious: Yes (Other)
  Sender: FDA-Public Use
  Company Number: None

PATIENT
  Age: 66 Year
  Sex: Female
  Weight: 91.35 kg

DRUGS (2)
  1. CAPCITABINE [Suspect]
     Active Substance: CAPECITABINE
     Indication: BREAST CANCER
     Dosage: ?          OTHER FREQUENCY:7 DAYS ON, 7 OFF;?
     Route: 048
     Dates: start: 20161014, end: 20180618
  2. ATORVASTATIN [Concomitant]
     Active Substance: ATORVASTATIN

REACTIONS (2)
  - Abdominal pain upper [None]
  - Palmar-plantar erythrodysaesthesia syndrome [None]
